FAERS Safety Report 6899774-X (Version None)
Quarter: 2010Q3

REPORT INFORMATION
  Report Type: 
  Country: None (occurrence: None)
  Receive Date: 20100803
  Receipt Date: 20070329
  Transmission Date: 20110219
  Serious: No
  Sender: FDA-Public Use
  Company Number: US-PFIZER INC-2007025609

PATIENT
  Sex: Female
  Weight: 58.1 kg

DRUGS (6)
  1. LYRICA [Suspect]
     Indication: HEADACHE
     Dates: start: 20070201
  2. DETROL LA [Suspect]
     Indication: BLADDER DISORDER
  3. AMITRIPTYLINE HCL [Suspect]
  4. BUSPIRONE HYDROCHLORIDE [Suspect]
  5. ANTICHOLINERGICS [Suspect]
  6. LEXAPRO [Concomitant]

REACTIONS (7)
  - BALANCE DISORDER [None]
  - BLADDER DISORDER [None]
  - DRUG INEFFECTIVE [None]
  - DRY MOUTH [None]
  - TREMOR [None]
  - URINARY INCONTINENCE [None]
  - WEIGHT INCREASED [None]
